FAERS Safety Report 12327645 (Version 1)
Quarter: 2016Q2

REPORT INFORMATION
  Report Type: Spontaneous
  Country: US (occurrence: US)
  Receive Date: 20160503
  Receipt Date: 20160503
  Transmission Date: 20160815
  Serious: Yes (Other)
  Sender: FDA-Public Use
  Company Number: US-SHIRE-US201605125

PATIENT
  Sex: Female

DRUGS (3)
  1. LIALDA [Suspect]
     Active Substance: MESALAMINE
     Dosage: 3.6 G (THREE 1.2 G TABLETS), UNKNOWN (PER DAY)
     Route: 048
  2. LIALDA [Suspect]
     Active Substance: MESALAMINE
     Dosage: 7.2 G (SIX 1.2 G TABLETS), UNKNOWN (PER DAY)
     Route: 048
  3. LIALDA [Suspect]
     Active Substance: MESALAMINE
     Indication: COLITIS ULCERATIVE
     Dosage: 2.4 G (TWO 1.2 G TABLETS), 2X/DAY:BID (MORNING AND NIGHT)
     Route: 048

REACTIONS (3)
  - Colitis ulcerative [Unknown]
  - Inappropriate schedule of drug administration [Not Recovered/Not Resolved]
  - Overdose [Recovered/Resolved]
